FAERS Safety Report 9911767 (Version 2)
Quarter: 2014Q2

REPORT INFORMATION
  Report Type: Report from Study
  Country: CA (occurrence: CA)
  Receive Date: 20140219
  Receipt Date: 20140408
  Transmission Date: 20141212
  Serious: No
  Sender: FDA-Public Use
  Company Number: PHHY2014CA020432

PATIENT
  Age: 69 Year
  Sex: Female

DRUGS (10)
  1. ACLASTA [Suspect]
     Indication: OSTEOPOROSIS
     Dosage: 5 MG, UNK
     Route: 042
     Dates: start: 20120109
  2. ACLASTA [Suspect]
     Dosage: 5 MG, UNK
     Route: 042
     Dates: start: 20130121
  3. M-ESLON [Concomitant]
     Dosage: 15 MG, Q6H
     Route: 048
  4. AMITRIPTYLINE [Concomitant]
     Dosage: 40 MG, AT BED TIME
     Route: 048
  5. LORAZEPAM [Concomitant]
     Dosage: 1 MG, AT BED TIME
  6. RABEPRAZOLE [Concomitant]
     Dosage: 40 MG, DAILY
     Route: 048
  7. RAMIPRIL [Concomitant]
     Dosage: 5 MG, DAILY
     Route: 048
  8. NITROSPRAY [Concomitant]
     Dosage: UNK UKN AS NEEDED
  9. VITAMIN D NOS [Concomitant]
     Dosage: 1400 UNK, DAILY
     Route: 048
  10. CALCIUM [Concomitant]
     Dosage: 600 MG, DAILY
     Route: 048

REACTIONS (5)
  - Mobility decreased [Unknown]
  - Groin pain [Recovered/Resolved]
  - Pain [Recovered/Resolved]
  - Pain in extremity [Recovered/Resolved]
  - Arthralgia [Not Recovered/Not Resolved]
